FAERS Safety Report 7299489-2 (Version None)
Quarter: 2011Q1

REPORT INFORMATION
  Report Type: 
  Country: None (occurrence: None)
  Receive Date: 20110217
  Receipt Date: 20110214
  Transmission Date: 20110831
  Serious: Yes (Other)
  Sender: FDA-Public Use
  Company Number: BR-ABBOTT-10P-020-0671685-00

PATIENT
  Sex: Female
  Weight: 82 kg

DRUGS (4)
  1. MELOXICAM [Concomitant]
     Indication: RHEUMATOID ARTHRITIS
     Route: 048
  2. ARAVA [Concomitant]
     Indication: RHEUMATOID ARTHRITIS
     Route: 048
     Dates: start: 20091101
  3. HUMIRA [Suspect]
     Indication: RHEUMATOID ARTHRITIS
     Route: 058
     Dates: start: 20090927, end: 20110114
  4. PREDNISONE TAB [Concomitant]
     Indication: RHEUMATOID ARTHRITIS
     Route: 048

REACTIONS (8)
  - BUNION [None]
  - JOINT RANGE OF MOTION DECREASED [None]
  - PURULENT DISCHARGE [None]
  - ABSCESS [None]
  - HYPERKERATOSIS [None]
  - ACQUIRED CLAW TOE [None]
  - INFLAMMATION [None]
  - WEIGHT INCREASED [None]
